FAERS Safety Report 6742576-5 (Version None)
Quarter: 2010Q2

REPORT INFORMATION
  Report Type: 
  Country: None (occurrence: None)
  Receive Date: 20100524
  Receipt Date: 20100421
  Transmission Date: 20101027
  Serious: No
  Sender: FDA-Public Use
  Company Number: ACO_00732_2010

PATIENT
  Sex: Female
  Weight: 61.2356 kg

DRUGS (7)
  1. AMPYRA [Suspect]
     Indication: MULTIPLE SCLEROSIS
     Dosage: 10 MG BID ORAL
     Route: 048
     Dates: start: 20100416
  2. LYRICA [Concomitant]
  3. ACIPHEX [Concomitant]
  4. FLUOXETINE [Concomitant]
  5. CARBAMAZEPINE [Concomitant]
  6. NAPROXEN [Concomitant]
  7. FLOMAX [Concomitant]

REACTIONS (3)
  - CONDITION AGGRAVATED [None]
  - DIZZINESS [None]
  - HEADACHE [None]
